FAERS Safety Report 12991892 (Version 2)
Quarter: 2017Q1

REPORT INFORMATION
  Report Type: Spontaneous
  Country: FR (occurrence: FR)
  Receive Date: 20161201
  Receipt Date: 20170323
  Transmission Date: 20170428
  Serious: Yes (Congenital Anomaly)
  Sender: FDA-Public Use
  Company Number: FR-LUNDBECK-DKLU2023378

PATIENT
  Age: 0 Day
  Sex: Female

DRUGS (3)
  1. TEGRETOL [Suspect]
     Active Substance: CARBAMAZEPINE
     Indication: PRODUCT USED FOR UNKNOWN INDICATION
     Route: 064
  2. URBANYL [Suspect]
     Active Substance: CLOBAZAM
     Indication: PRODUCT USED FOR UNKNOWN INDICATION
     Route: 064
  3. ZONEGRAN [Suspect]
     Active Substance: ZONISAMIDE
     Indication: PARTIAL SEIZURES
     Route: 064
     Dates: start: 201401

REACTIONS (2)
  - Pulmonary valve stenosis congenital [Not Recovered/Not Resolved]
  - Renal hypoplasia [Not Recovered/Not Resolved]

NARRATIVE: CASE EVENT DATE: 20161012
